FAERS Safety Report 12872569 (Version 2)
Quarter: 2016Q4

REPORT INFORMATION
  Report Type: Spontaneous
  Country: JP (occurrence: JP)
  Receive Date: 20161021
  Receipt Date: 20161123
  Transmission Date: 20170207
  Serious: Yes (Other)
  Sender: FDA-Public Use
  Company Number: US-ASTRAZENECA-2016SF10408

PATIENT
  Age: 49 Day
  Sex: Female
  Weight: 4.2 kg

DRUGS (1)
  1. SYNAGIS [Suspect]
     Active Substance: PALIVIZUMAB
     Indication: PREMATURE BABY
     Dosage: 65.0MG UNKNOWN
     Route: 030
     Dates: start: 20160914, end: 20160914

REACTIONS (6)
  - Breath holding [Unknown]
  - Crying [Unknown]
  - Pallor [Recovered/Resolved]
  - Injection site pain [Unknown]
  - Cyanosis [Recovered/Resolved]
  - Injection site discolouration [Not Recovered/Not Resolved]

NARRATIVE: CASE EVENT DATE: 20160914
